FAERS Safety Report 5910835-1 (Version None)
Quarter: 2008Q4

REPORT INFORMATION
  Report Type: 
  Country: None (occurrence: None)
  Receive Date: 20081006
  Receipt Date: 20081006
  Transmission Date: 20090506
  Serious: No
  Sender: FDA-Public Use
  Company Number: None

PATIENT
  Age: 49 Year
  Sex: Female
  Weight: 60.3284 kg

DRUGS (4)
  1. MICARDIS [Suspect]
     Indication: HYPERTENSION
     Dosage: 1 PILL BEDTIME PO
     Route: 048
     Dates: start: 20080522, end: 20080813
  2. MICARDIS [Suspect]
     Indication: RENAL DISORDER
     Dosage: 1 PILL BEDTIME PO
     Route: 048
     Dates: start: 20080522, end: 20080813
  3. MICARDIS [Suspect]
     Indication: HYPERTENSION
     Dosage: 1 PILL BEDTIME PO
     Route: 048
     Dates: start: 20080909, end: 20081001
  4. MICARDIS [Suspect]
     Indication: RENAL DISORDER
     Dosage: 1 PILL BEDTIME PO
     Route: 048
     Dates: start: 20080909, end: 20081001

REACTIONS (3)
  - DIZZINESS [None]
  - FATIGUE [None]
  - MALAISE [None]
